FAERS Safety Report 7573814-7 (Version None)
Quarter: 2011Q2

REPORT INFORMATION
  Report Type: 
  Country: None (occurrence: None)
  Receive Date: 20110627
  Receipt Date: 20110607
  Transmission Date: 20111010
  Serious: Yes (Hospitalization)
  Sender: FDA-Public Use
  Company Number: A0730277A

PATIENT
  Age: 63 Year
  Sex: Male
  Weight: 111.4 kg

DRUGS (9)
  1. ACTOS [Concomitant]
  2. AMARYL [Concomitant]
  3. TORSEMIDE [Concomitant]
  4. COUMADIN [Concomitant]
  5. MONOPRIL [Concomitant]
  6. AVANDIA [Suspect]
     Dosage: 4MG TWICE PER DAY
     Route: 048
     Dates: start: 20050101, end: 20070101
  7. AVANDAMET [Suspect]
     Route: 065
     Dates: start: 20030501
  8. ALLOPURINOL [Concomitant]
  9. LANTUS [Concomitant]

REACTIONS (2)
  - CORONARY ARTERY DISEASE [None]
  - MYOCARDIAL INFARCTION [None]
